FAERS Safety Report 15575436 (Version 1)
Quarter: 2018Q4

REPORT INFORMATION
  Report Type: Report from Study
  Country: RO (occurrence: RO)
  Receive Date: 20181101
  Receipt Date: 20181101
  Transmission Date: 20190205
  Serious: Yes (Hospitalization)
  Sender: FDA-Public Use
  Company Number: PHHY2018RO138977

PATIENT
  Age: 12 Year
  Sex: Male
  Weight: 20 kg

DRUGS (1)
  1. OMNITROPE [Suspect]
     Active Substance: SOMATROPIN
     Indication: GROWTH HORMONE DEFICIENCY
     Dosage: UNK, QD (10 MG/1.5 ML)
     Route: 058
     Dates: start: 20171122, end: 20180216

REACTIONS (1)
  - Cardiac valve fibroelastoma [Not Recovered/Not Resolved]

NARRATIVE: CASE EVENT DATE: 20180216
